FAERS Safety Report 25717614 (Version 1)
Quarter: 2025Q3

REPORT INFORMATION
  Report Type: Spontaneous
  Country: EU (occurrence: EU)
  Receive Date: 20250822
  Receipt Date: 20250822
  Transmission Date: 20251020
  Serious: Yes (Other)
  Sender: PFIZER
  Company Number: EU-PFIZER INC-202500167950

PATIENT
  Sex: Male

DRUGS (12)
  1. METHYLPREDNISOLONE SODIUM SUCCINATE [Suspect]
     Active Substance: METHYLPREDNISOLONE SODIUM SUCCINATE
     Indication: Respiratory failure
     Dosage: 250 MG, 1X/DAY
     Route: 051
     Dates: start: 199007
  2. METHYLPREDNISOLONE SODIUM SUCCINATE [Suspect]
     Active Substance: METHYLPREDNISOLONE SODIUM SUCCINATE
     Dosage: 120 MG, 1X/DAY
     Route: 051
     Dates: start: 199007
  3. METHYLPREDNISOLONE SODIUM SUCCINATE [Suspect]
     Active Substance: METHYLPREDNISOLONE SODIUM SUCCINATE
     Dosage: 60 MG, 1X/DAY
     Route: 051
     Dates: start: 199007
  4. AMBROXOL [Suspect]
     Active Substance: AMBROXOL
     Indication: Respiratory failure
     Dates: start: 199007
  5. AMINOPHYLLINE [Suspect]
     Active Substance: AMINOPHYLLINE
     Indication: Respiratory failure
     Dosage: 720 MG, 1X/DAY
     Dates: start: 199007
  6. FENOTEROL [Suspect]
     Active Substance: FENOTEROL
     Indication: Respiratory failure
     Dates: start: 199007
  7. PANCURONIUM [Concomitant]
     Active Substance: PANCURONIUM
     Indication: Sedation
     Dates: start: 199007
  8. PANCURONIUM [Concomitant]
     Active Substance: PANCURONIUM
     Dates: start: 199007, end: 19900726
  9. ATRACURIUM [Concomitant]
     Active Substance: ATRACURIUM
     Indication: Sedation
     Dates: start: 199007
  10. ERYTHROMYCIN [Concomitant]
     Active Substance: ERYTHROMYCIN
     Indication: Antibiotic therapy
     Dosage: 3 G, 1X/DAY
     Dates: start: 199007
  11. IMIPENEM AND CILASTATIN [Concomitant]
     Active Substance: CILASTATIN SODIUM\IMIPENEM
     Indication: Antibiotic therapy
     Dosage: 1500 MG, 1X/DAY
     Dates: start: 199007
  12. MIDAZOLAM [Concomitant]
     Active Substance: MIDAZOLAM
     Indication: Sedation
     Dates: start: 199007

REACTIONS (2)
  - Rhabdomyolysis [Unknown]
  - Myopathy [Unknown]
